FAERS Safety Report 17097236 (Version 2)
Quarter: 2019Q4

REPORT INFORMATION
  Report Type: Spontaneous
  Country: ES (occurrence: ES)
  Receive Date: 20191202
  Receipt Date: 20191206
  Transmission Date: 20200122
  Serious: Yes (Life-Threatening, Other)
  Sender: FDA-Public Use
  Company Number: ES-ACCORD-162460

PATIENT
  Age: 17 Year
  Sex: Male

DRUGS (10)
  1. ETOPOSIDE. [Suspect]
     Active Substance: ETOPOSIDE
     Indication: NONGERMINOMATOUS GERM CELL TUMOUR OF THE CNS
  2. CYCLOPHOSPHAMIDE/CYCLOPHOSPHAMIDE MONOHYDRATE [Concomitant]
     Active Substance: CYCLOPHOSPHAMIDE
     Indication: NONGERMINOMATOUS GERM CELL TUMOUR OF THE CNS
  3. CARBOPLATIN. [Concomitant]
     Active Substance: CARBOPLATIN
     Indication: NONGERMINOMATOUS GERM CELL TUMOUR OF THE CNS
     Dosage: TWO CYCLES OF HIGH-DOSE CHEMOTHERAPY
  4. MELPHALAN. [Concomitant]
     Active Substance: MELPHALAN
     Indication: NONGERMINOMATOUS GERM CELL TUMOUR OF THE CNS
  5. PACLITAXEL/PACLITAXEL LIPOSOME [Suspect]
     Active Substance: PACLITAXEL
     Indication: NONGERMINOMATOUS GERM CELL TUMOUR OF THE CNS
     Dosage: 9 CYCLE
  6. CISPLATIN. [Suspect]
     Active Substance: CISPLATIN
     Indication: NONGERMINOMATOUS GERM CELL TUMOUR OF THE CNS
  7. IFOSFAMIDE. [Concomitant]
     Active Substance: IFOSFAMIDE
     Indication: NONGERMINOMATOUS GERM CELL TUMOUR OF THE CNS
  8. THIOTEPA. [Concomitant]
     Active Substance: THIOTEPA
     Indication: NONGERMINOMATOUS GERM CELL TUMOUR OF THE CNS
  9. OXALIPLATIN. [Suspect]
     Active Substance: OXALIPLATIN
     Indication: NONGERMINOMATOUS GERM CELL TUMOUR OF THE CNS
     Dosage: 9 CYCLE
  10. GEMCITABINE/GEMCITABINE HYDROCHLORIDE [Suspect]
     Active Substance: GEMCITABINE\GEMCITABINE HYDROCHLORIDE
     Indication: NONGERMINOMATOUS GERM CELL TUMOUR OF THE CNS
     Dosage: 9 CYCLE

REACTIONS (4)
  - Haematotoxicity [Unknown]
  - Hypersensitivity [Unknown]
  - Off label use [Unknown]
  - Hepatotoxicity [Recovered/Resolved]
